FAERS Safety Report 26188056 (Version 1)
Quarter: 2025Q4

REPORT INFORMATION
  Report Type: Spontaneous
  Country: US (occurrence: US)
  Receive Date: 20251222
  Receipt Date: 20251222
  Transmission Date: 20260118
  Serious: No
  Sender: Alora Pharma
  Company Number: US-VERTICAL PHARMACEUTICALS-2025ALO02322

PATIENT
  Sex: Male

DRUGS (1)
  1. DSUVIA [Suspect]
     Active Substance: SUFENTANIL

REACTIONS (1)
  - Respiratory disorder [Unknown]
